FAERS Safety Report 23914229 (Version 2)
Quarter: 2024Q2

REPORT INFORMATION
  Report Type: Report from Study
  Country: US (occurrence: US)
  Receive Date: 20240529
  Receipt Date: 20240603
  Transmission Date: 20240716
  Serious: Yes (Hospitalization)
  Sender: FDA-Public Use
  Company Number: US-BAYER-2024A065939

PATIENT
  Age: 51 Year
  Sex: Female
  Weight: 80.272 kg

DRUGS (20)
  1. ADEMPAS [Suspect]
     Active Substance: RIOCIGUAT
     Indication: Pulmonary arterial hypertension
     Dosage: UNK
     Route: 048
     Dates: start: 20210415
  2. ADEMPAS [Suspect]
     Active Substance: RIOCIGUAT
     Indication: Pulmonary hypertension
     Dosage: 2.5 MG, TID
     Route: 048
  3. ADEMPAS [Suspect]
     Active Substance: RIOCIGUAT
     Indication: Pulmonary arterial hypertension
     Dosage: 2.5 MG, TID
     Route: 048
     Dates: start: 20170518
  4. VITAMIN B12 [Concomitant]
     Active Substance: CYANOCOBALAMIN
  5. POTASSIUM CHLORIDE [Concomitant]
     Active Substance: POTASSIUM CHLORIDE
  6. MIRENA [Concomitant]
     Active Substance: LEVONORGESTREL
     Dosage: 20?G/DAY
     Route: 015
  7. MEGESTROL ACETATE [Concomitant]
     Active Substance: MEGESTROL ACETATE
  8. LASIX [Concomitant]
     Active Substance: FUROSEMIDE
  9. NAPROXEN [Concomitant]
     Active Substance: NAPROXEN
  10. DOXYCYCLINE HYCLATE [Concomitant]
     Active Substance: DOXYCYCLINE HYCLATE
  11. METHIMAZOLE [Concomitant]
     Active Substance: METHIMAZOLE
  12. FLONASE ALLERGY RELIEF [Concomitant]
     Active Substance: FLUTICASONE PROPIONATE
  13. IRON [Concomitant]
     Active Substance: IRON
  14. REMODULIN [Concomitant]
     Active Substance: TREPROSTINIL
  15. MIDODRINE HYDROCHLORIDE [Concomitant]
     Active Substance: MIDODRINE HYDROCHLORIDE
  16. AZITHROMYCIN [Concomitant]
     Active Substance: AZITHROMYCIN
  17. DIPHENHYDRAMINE HYDROCHLORIDE [Concomitant]
     Active Substance: DIPHENHYDRAMINE HYDROCHLORIDE
  18. AMBRISENTAN [Concomitant]
     Active Substance: AMBRISENTAN
  19. VITAMIN C [Concomitant]
     Active Substance: ASCORBIC ACID
  20. ASPIRIN [Concomitant]
     Active Substance: ASPIRIN

REACTIONS (2)
  - Thyroidectomy [None]
  - Hysterectomy [None]

NARRATIVE: CASE EVENT DATE: 20240430
